FAERS Safety Report 4434962-3 (Version None)
Quarter: 2004Q3

REPORT INFORMATION
  Report Type: 
  Country: None (occurrence: None)
  Receive Date: 20040827
  Receipt Date: 20040823
  Transmission Date: 20050211
  Serious: Yes (Hospitalization)
  Sender: FDA-Public Use
  Company Number: 200418336GDDC

PATIENT
  Age: 84 Year
  Sex: Male

DRUGS (1)
  1. FRUSEMIDE [Suspect]
     Indication: CARDIAC FAILURE CONGESTIVE
     Route: 048
     Dates: start: 20040701, end: 20040702

REACTIONS (3)
  - AGGRESSION [None]
  - CONFUSIONAL STATE [None]
  - HALLUCINATION [None]
